FAERS Safety Report 8111088-9 (Version None)
Quarter: 2012Q1

REPORT INFORMATION
  Report Type: 
  Country: None (occurrence: None)
  Receive Date: 20120203
  Receipt Date: 20110408
  Transmission Date: 20120608
  Serious: No
  Sender: FDA-Public Use
  Company Number: US-GLAXOSMITHKLINE-A0922093A

PATIENT
  Age: 29 Year
  Sex: Female

DRUGS (3)
  1. HYDROCODONE BITARTRATE [Concomitant]
  2. LAMICTAL [Suspect]
     Indication: BIPOLAR DISORDER
     Route: 048
     Dates: start: 20110405, end: 20110407
  3. AMBIEN [Concomitant]

REACTIONS (3)
  - RASH [None]
  - THROAT IRRITATION [None]
  - OROPHARYNGEAL PAIN [None]
